FAERS Safety Report 18773819 (Version 3)
Quarter: 2021Q2

REPORT INFORMATION
  Report Type: Spontaneous
  Country: CH (occurrence: CH)
  Receive Date: 20210122
  Receipt Date: 20210402
  Transmission Date: 20210717
  Serious: Yes (Other)
  Sender: FDA-Public Use
  Company Number: CH-ABBVIE-21K-151-3739484-00

PATIENT
  Age: 71 Year
  Sex: Female

DRUGS (4)
  1. HUMIRA [Suspect]
     Active Substance: ADALIMUMAB
     Route: 058
     Dates: start: 202101
  2. OZURDEX [Concomitant]
     Active Substance: DEXAMETHASONE
     Indication: UVEITIS
     Dates: start: 20201209
  3. HUMIRA [Suspect]
     Active Substance: ADALIMUMAB
     Indication: UVEITIS
     Route: 058
     Dates: start: 20200819
  4. IMUREK [Concomitant]
     Active Substance: AZATHIOPRINE
     Indication: UVEITIS
     Dosage: 2 IN THE MORNING, 2 IN THE EVENING
     Dates: start: 202006

REACTIONS (3)
  - Eye inflammation [Unknown]
  - Intraocular pressure increased [Recovered/Resolved]
  - Off label use [Not Recovered/Not Resolved]

NARRATIVE: CASE EVENT DATE: 20210106
